FAERS Safety Report 5369105-5 (Version None)
Quarter: 2007Q2

REPORT INFORMATION
  Report Type: 
  Country: None (occurrence: None)
  Receive Date: 20070625
  Receipt Date: 20070202
  Transmission Date: 20071010
  Serious: No
  Sender: FDA-Public Use
  Company Number: US-ASTRAZENECA-2007UW02261

PATIENT
  Age: 82 Year
  Sex: Female
  Weight: 66.2 kg

DRUGS (2)
  1. CRESTOR [Suspect]
     Indication: BLOOD CHOLESTEROL INCREASED
     Route: 048
     Dates: start: 20070131
  2. ATACAND [Concomitant]

REACTIONS (2)
  - DRY MOUTH [None]
  - TONGUE DISORDER [None]
